FAERS Safety Report 6715991-3 (Version None)
Quarter: 2010Q2

REPORT INFORMATION
  Report Type: 
  Country: None (occurrence: None)
  Receive Date: 20100506
  Receipt Date: 20100506
  Transmission Date: 20101027
  Serious: Yes (Other)
  Sender: FDA-Public Use
  Company Number: None

PATIENT
  Sex: Female
  Weight: 113.3993 kg

DRUGS (1)
  1. HUMIRA [Suspect]
     Indication: PSORIASIS
     Dosage: 40 MG BIWEEKLY SQ
     Route: 058
     Dates: start: 20080101, end: 20090101

REACTIONS (5)
  - ARTHRALGIA [None]
  - IMPAIRED HEALING [None]
  - LUPUS-LIKE SYNDROME [None]
  - SCAR [None]
  - ULCER [None]
